FAERS Safety Report 21316852 (Version 1)
Quarter: 2022Q3

REPORT INFORMATION
  Report Type: Spontaneous
  Country: US (occurrence: US)
  Receive Date: 20220911
  Receipt Date: 20220911
  Transmission Date: 20221026
  Serious: No
  Sender: FDA-Public Use
  Company Number: US-SANOFI-01239104

PATIENT
  Age: 87 Year
  Sex: Male

DRUGS (2)
  1. DUPIXENT [Suspect]
     Active Substance: DUPILUMAB
     Indication: Pruritus
     Dosage: UNK
     Dates: start: 20220812
  2. DUPIXENT [Suspect]
     Active Substance: DUPILUMAB
     Indication: Urticaria

REACTIONS (2)
  - Vision blurred [Unknown]
  - Product use in unapproved indication [Unknown]

NARRATIVE: CASE EVENT DATE: 20220812
